FAERS Safety Report 6680138-9 (Version None)
Quarter: 2010Q2

REPORT INFORMATION
  Report Type: 
  Country: None (occurrence: None)
  Receive Date: 20100413
  Receipt Date: 20100401
  Transmission Date: 20101027
  Serious: Yes (Hospitalization, Other)
  Sender: FDA-Public Use
  Company Number: BR-PFIZER INC-2010041652

PATIENT
  Age: 58 Year
  Sex: Male
  Weight: 113 kg

DRUGS (3)
  1. FRONTAL XR [Suspect]
     Indication: RELAXATION THERAPY
     Dosage: 0.5 MG DAILY
     Route: 048
     Dates: start: 19980101
  2. FRONTAL XR [Suspect]
     Indication: SEDATION
  3. MICARDIS HCT [Concomitant]
     Indication: HYPERTENSION
     Dosage: UNK
     Dates: start: 20050101

REACTIONS (4)
  - CORONARY ARTERY OCCLUSION [None]
  - DRUG DISPENSING ERROR [None]
  - DRUG INEFFECTIVE [None]
  - VENTRICULAR HYPOKINESIA [None]
